FAERS Safety Report 15842145 (Version 1)
Quarter: 2019Q1

REPORT INFORMATION
  Report Type: Spontaneous
  Country: US (occurrence: US)
  Receive Date: 20190118
  Receipt Date: 20190118
  Transmission Date: 20190417
  Serious: Yes (Death, Hospitalization, Other)
  Sender: FDA-Public Use
  Company Number: US-APOTEX-2019AP006041

PATIENT
  Age: 29 Year
  Sex: Female

DRUGS (1)
  1. DIPHENHYDRAMINE. [Suspect]
     Active Substance: DIPHENHYDRAMINE
     Indication: PRODUCT USED FOR UNKNOWN INDICATION
     Dosage: UNK
     Route: 048

REACTIONS (14)
  - Pupillary light reflex tests abnormal [Fatal]
  - Hypertension [Fatal]
  - Electrocardiogram QT prolonged [Fatal]
  - Hypotonia [Fatal]
  - Unresponsive to stimuli [Fatal]
  - Cardio-respiratory arrest [Fatal]
  - Toxicity to various agents [Fatal]
  - Completed suicide [Fatal]
  - Pupil fixed [Fatal]
  - Seizure like phenomena [Fatal]
  - Hallucination [Fatal]
  - Gaze palsy [Fatal]
  - Tachycardia [Fatal]
  - Brain death [Fatal]
